FAERS Safety Report 11757464 (Version 1)
Quarter: 2015Q4

REPORT INFORMATION
  Report Type: Spontaneous
  Country: US (occurrence: None)
  Receive Date: 20151119
  Receipt Date: 20151119
  Transmission Date: 20160304
  Serious: Yes (Hospitalization)
  Sender: FDA-Public Use
  Company Number: None

PATIENT
  Age: 71 Year
  Sex: Male

DRUGS (1)
  1. CAPECITABINE 500MG [Suspect]
     Active Substance: CAPECITABINE
     Indication: PANCREATIC CARCINOMA
     Dosage: 7 TABS 3TAB AM 4 TAB PM
     Route: 048
     Dates: start: 20150403, end: 20151118

REACTIONS (3)
  - Diarrhoea [None]
  - Therapy cessation [None]
  - Pyrexia [None]
